FAERS Safety Report 6103647-X (Version None)
Quarter: 2009Q1

REPORT INFORMATION
  Report Type: 
  Country: None (occurrence: None)
  Receive Date: 20090227
  Receipt Date: 20090224
  Transmission Date: 20090719
  Serious: Yes (Death)
  Sender: FDA-Public Use
  Company Number: FR-GUERBET-20090045

PATIENT
  Age: 79 Year
  Sex: Male

DRUGS (16)
  1. HEXABRIX [Suspect]
     Indication: ARTERIOGRAM CORONARY
     Dosage: 30, ML MILLILITRE(S), 1, 1, TOTAL INTRA-ARTERIAL
     Route: 013
     Dates: start: 20090206, end: 20090206
  2. ATARAX [Concomitant]
  3. HYDROXYZINE [Concomitant]
  4. PRIMPERAN INJ [Concomitant]
  5. METOCLOPRAMIDE HYDROCHLORIDE [Concomitant]
  6. ZOFENOPRIL CALCIUM [Concomitant]
  7. ALLOPURINOL TAB [Concomitant]
  8. FENOFIBRATE [Concomitant]
  9. STRUCTUM [Concomitant]
  10. ASPIRIN [Concomitant]
  11. OMEXEL [Concomitant]
  12. TAMSULOSINE [Concomitant]
  13. PIASCLEDINE [Concomitant]
  14. AVOCADO OIL - SOJA POLYSACCHARIDE [Concomitant]
  15. NEXIUM [Concomitant]
  16. ESOMEPRAZOLE [Concomitant]

REACTIONS (4)
  - ALTERED STATE OF CONSCIOUSNESS [None]
  - ANAPHYLACTIC SHOCK [None]
  - COUGH [None]
  - PARAESTHESIA [None]
